FAERS Safety Report 17961636 (Version 1)
Quarter: 2020Q2

REPORT INFORMATION
  Report Type: Spontaneous
  Country: US (occurrence: US)
  Receive Date: 20200629
  Receipt Date: 20200629
  Transmission Date: 20200714
  Serious: Yes (Hospitalization)
  Sender: FDA-Public Use
  Company Number: None

PATIENT
  Age: 63 Year
  Sex: Male
  Weight: 83.91 kg

DRUGS (2)
  1. ENOXAPARIN (ENOXAPARIN 100MG/ML INJ) [Suspect]
     Active Substance: ENOXAPARIN
     Indication: HEPATIC ARTERY THROMBOSIS
     Route: 058
     Dates: start: 20200203, end: 20200205
  2. DEXTROSE/HEPARIN (HEPARIN NA 100UNT/ML/DEXTROSE 5% INJ) [Suspect]
     Active Substance: DEXTROSE\HEPARIN SODIUM
     Dosage: ?          OTHER STRENGTH:100UNT/ML;?
     Dates: start: 20200205

REACTIONS (3)
  - Blindness [None]
  - Haemoglobin decreased [None]
  - Intra-abdominal haematoma [None]

NARRATIVE: CASE EVENT DATE: 20200209
